FAERS Safety Report 4701254-4 (Version None)
Quarter: 2005Q2

REPORT INFORMATION
  Report Type: 
  Country: None (occurrence: None)
  Receive Date: 20050628
  Receipt Date: 20050617
  Transmission Date: 20051028
  Serious: Yes (Hospitalization)
  Sender: FDA-Public Use
  Company Number: US-MERCK-0506USA02763

PATIENT
  Sex: Male

DRUGS (2)
  1. INVANZ [Suspect]
     Route: 051
     Dates: start: 20050601, end: 20050601
  2. CORTICOSTEROIDS (UNSPECIFIED) [Concomitant]
     Route: 065

REACTIONS (3)
  - CONFUSIONAL STATE [None]
  - DELUSION [None]
  - PSYCHOTIC DISORDER [None]
